FAERS Safety Report 5185141-6 (Version None)
Quarter: 2006Q4

REPORT INFORMATION
  Report Type: 
  Country: None (occurrence: None)
  Receive Date: 20061220
  Receipt Date: 20060608
  Transmission Date: 20070319
  Serious: No
  Sender: FDA-Public Use
  Company Number: US-GLAXOSMITHKLINE-A0608308A

PATIENT
  Age: 40 Year
  Sex: Male

DRUGS (2)
  1. NICODERM CQ [Suspect]
     Dates: start: 20060607, end: 20060608
  2. NICODERM CQ [Suspect]
     Dates: start: 20060608, end: 20060608

REACTIONS (3)
  - ABDOMINAL PAIN UPPER [None]
  - ILL-DEFINED DISORDER [None]
  - PAIN IN EXTREMITY [None]
